FAERS Safety Report 7279203-7 (Version None)
Quarter: 2011Q1

REPORT INFORMATION
  Report Type: 
  Country: None (occurrence: None)
  Receive Date: 20110207
  Receipt Date: 20110125
  Transmission Date: 20110831
  Serious: Yes (Hospitalization)
  Sender: FDA-Public Use
  Company Number: ES-WATSON-2011-01251

PATIENT
  Age: 16 Month
  Sex: Female

DRUGS (1)
  1. TACROLIMUS [Suspect]
     Indication: INTESTINAL TRANSPLANT
     Dosage: UNK

REACTIONS (3)
  - GUILLAIN-BARRE SYNDROME [None]
  - ANAEMIA HAEMOLYTIC AUTOIMMUNE [None]
  - EVANS SYNDROME [None]
